FAERS Safety Report 20573240 (Version 1)
Quarter: 2022Q1

REPORT INFORMATION
  Report Type: Spontaneous
  Country: US (occurrence: None)
  Receive Date: 20220309
  Receipt Date: 20220309
  Transmission Date: 20220424
  Serious: Yes (Death)
  Sender: FDA-Public Use
  Company Number: None

PATIENT
  Sex: Female

DRUGS (12)
  1. BOTOX [Suspect]
     Active Substance: ONABOTULINUMTOXINA
     Indication: Quadriplegia
     Dosage: OTHER QUANTITY : 100 UNIT;?OTHER FREQUENCY : EVERY 90 DAYS; PHYSICIAN TO INJECT 600 UNITS INTO BILAT
     Route: 030
     Dates: start: 20210416
  2. BOTOX [Suspect]
     Active Substance: ONABOTULINUMTOXINA
     Indication: Cerebral palsy
  3. ALBUTEROL SULFATE [Concomitant]
     Active Substance: ALBUTEROL SULFATE
  4. ANTIFUNGAL CRE 1% [Concomitant]
  5. BOTOX INJ 100UNIT [Concomitant]
  6. CLOBAZAM SUS 2.5MG/ML [Concomitant]
  7. DIAZEPAM TAB 2MG [Concomitant]
  8. FLUOCINONIDE CRE 0.05% [Concomitant]
  9. LIDOCAINE SOL 2% VISC [Concomitant]
  10. MIGLUSTAT CAP 100MG [Concomitant]
  11. NEXIUM GRA 40MG DR [Concomitant]
  12. SODIUM CHLORNEB 3% [Concomitant]

REACTIONS (1)
  - Death [None]
